FAERS Safety Report 8439168-9 (Version None)
Quarter: 2012Q2

REPORT INFORMATION
  Report Type: 
  Country: None (occurrence: None)
  Receive Date: 20120615
  Receipt Date: 20120606
  Transmission Date: 20120825
  Serious: Yes (Other)
  Sender: FDA-Public Use
  Company Number: PHHY2012IT048920

PATIENT
  Age: 37 Year
  Sex: Male

DRUGS (2)
  1. TRIPTORELIN [Suspect]
     Dosage: UNK
  2. LETROZOLE [Suspect]
     Indication: LYMPHANGIOLEIOMYOMATOSIS
     Dosage: 2.5 MG, DAILY
     Route: 048

REACTIONS (7)
  - EJACULATION FAILURE [None]
  - FLUSHING [None]
  - LIBIDO DECREASED [None]
  - BONE DENSITY DECREASED [None]
  - FATIGUE [None]
  - SECONDARY HYPOGONADISM [None]
  - ANXIETY [None]
